FAERS Safety Report 7605580-0 (Version None)
Quarter: 2011Q3

REPORT INFORMATION
  Report Type: 
  Country: None (occurrence: None)
  Receive Date: 20110712
  Receipt Date: 20110712
  Transmission Date: 20111222
  Serious: No
  Sender: FDA-Public Use
  Company Number: None

PATIENT
  Age: 75 Year
  Sex: Male
  Weight: 73 kg

DRUGS (1)
  1. HEPARIN SODIUM 1,000 UNITS IN DEXTROSE 5% [Suspect]
     Indication: CARDIAC OPERATION
     Dosage: 40 UNITS UD IV
     Route: 042
     Dates: start: 20110326, end: 20110327

REACTIONS (2)
  - FAECES DISCOLOURED [None]
  - HEPARIN-INDUCED THROMBOCYTOPENIA [None]
